FAERS Safety Report 11446451 (Version 1)
Quarter: 2015Q3

REPORT INFORMATION
  Report Type: Spontaneous
  Country: US (occurrence: US)
  Receive Date: 20150831
  Receipt Date: 20150831
  Transmission Date: 20151125
  Serious: No
  Sender: FDA-Public Use
  Company Number: US-ELI_LILLY_AND_COMPANY-US200812003404

PATIENT
  Sex: Female

DRUGS (8)
  1. MOBIC [Concomitant]
     Active Substance: MELOXICAM
  2. LAMICTAL [Concomitant]
     Active Substance: LAMOTRIGINE
     Indication: MOOD SWINGS
  3. MELATONIN [Concomitant]
     Active Substance: MELATONIN
  4. LUNESTA [Concomitant]
     Active Substance: ESZOPICLONE
  5. CYMBALTA [Suspect]
     Active Substance: DULOXETINE HYDROCHLORIDE
     Dosage: 60 MG, UNK
  6. WELLBUTRIN [Concomitant]
     Active Substance: BUPROPION HYDROCHLORIDE
  7. PROTONIX [Concomitant]
     Active Substance: PANTOPRAZOLE SODIUM
  8. CYMBALTA [Suspect]
     Active Substance: DULOXETINE HYDROCHLORIDE
     Indication: PAIN
     Dosage: 30 MG, UNK

REACTIONS (11)
  - Ear disorder [Unknown]
  - Feeling cold [Unknown]
  - Urinary hesitation [Unknown]
  - Decreased appetite [Unknown]
  - Cheilitis [Unknown]
  - Feeling hot [Unknown]
  - Hyperhidrosis [Unknown]
  - Erythema [Unknown]
  - Lip dry [Unknown]
  - Glossodynia [Unknown]
  - Constipation [Unknown]
